FAERS Safety Report 7341414-X (Version None)
Quarter: 2011Q1

REPORT INFORMATION
  Report Type: 
  Country: None (occurrence: None)
  Receive Date: 20110309
  Receipt Date: 20110228
  Transmission Date: 20110831
  Serious: Yes (Other)
  Sender: FDA-Public Use
  Company Number: US-MERCK-0702USA04542

PATIENT
  Age: 68 Year
  Sex: Male
  Weight: 75 kg

DRUGS (7)
  1. TYLENOL W/ CODEINE NO. 3 [Concomitant]
     Route: 065
     Dates: start: 19950101
  2. CELEBREX [Concomitant]
     Indication: ARTHRITIS
     Route: 065
     Dates: start: 19900101, end: 20050112
  3. FOSAMAX [Suspect]
     Indication: OSTEOPOROSIS
     Route: 048
     Dates: start: 19980501, end: 20030909
  4. ZANTAC [Concomitant]
     Route: 065
     Dates: start: 19950101
  5. CELEBREX [Concomitant]
     Indication: ARTHRALGIA
     Route: 065
     Dates: start: 19900101, end: 20050112
  6. PRAVACHOL [Concomitant]
     Indication: BLOOD CHOLESTEROL INCREASED
     Route: 065
     Dates: start: 19950101, end: 20060501
  7. PREDNISONE [Concomitant]
     Indication: CHRONIC INFLAMMATORY DEMYELINATING POLYRADICULONEUROPATHY
     Route: 065
     Dates: start: 19940101, end: 20030101

REACTIONS (19)
  - CEREBRAL ISCHAEMIA [None]
  - DEPRESSION [None]
  - PHLEBOLITH [None]
  - RECTAL HAEMORRHAGE [None]
  - CONVULSION [None]
  - DRUG HYPERSENSITIVITY [None]
  - SPINAL OSTEOARTHRITIS [None]
  - OSTEONECROSIS OF JAW [None]
  - DRUG INEFFECTIVE [None]
  - GASTROOESOPHAGEAL REFLUX DISEASE [None]
  - URINARY RETENTION [None]
  - HAEMORRHOIDS [None]
  - HYPERLIPIDAEMIA [None]
  - VENOUS INSUFFICIENCY [None]
  - TOOTH ABSCESS [None]
  - SALIVARY GLAND ADENOMA [None]
  - ORAL TORUS [None]
  - OSTEOARTHRITIS [None]
  - CELLULITIS [None]
